FAERS Safety Report 5069006-6 (Version None)
Quarter: 2006Q3

REPORT INFORMATION
  Report Type: 
  Country: None (occurrence: None)
  Receive Date: 20060801
  Receipt Date: 20060801
  Transmission Date: 20061208
  Serious: Yes (Other)
  Sender: FDA-Public Use
  Company Number: None

PATIENT
  Sex: Female
  Weight: 76.2043 kg

DRUGS (3)
  1. ZOMETA [Suspect]
     Indication: METASTASIS
     Dosage: 4 MG EVERY 4 WEEKS IV
     Route: 042
     Dates: start: 20040212, end: 20060404
  2. VINORELBINE [Concomitant]
  3. IRON DEXTRAN [Concomitant]

REACTIONS (3)
  - INFECTION [None]
  - JAW DISORDER [None]
  - OSTEONECROSIS [None]
